FAERS Safety Report 4321762-8 (Version None)
Quarter: 2004Q1

REPORT INFORMATION
  Report Type: 
  Country: None (occurrence: None)
  Receive Date: 20040322
  Receipt Date: 20031125
  Transmission Date: 20041129
  Serious: No
  Sender: FDA-Public Use
  Company Number: US-BRISTOL-MYERS SQUIBB COMPANY-12458659

PATIENT
  Age: 45 Year
  Sex: Male
  Weight: 67 kg

DRUGS (1)
  1. VAGISTAT-1 [Suspect]
     Indication: FUNGAL INFECTION
     Route: 054
     Dates: start: 20031124, end: 20031124

REACTIONS (3)
  - DIZZINESS [None]
  - NAUSEA [None]
  - SLEEP DISORDER [None]
